FAERS Safety Report 16355241 (Version 1)
Quarter: 2019Q2

REPORT INFORMATION
  Report Type: Spontaneous
  Country: GB (occurrence: GB)
  Receive Date: 20190525
  Receipt Date: 20190525
  Transmission Date: 20190711
  Serious: Yes (Life-Threatening, Other)
  Sender: FDA-Public Use
  Company Number: GB-009507513-1905GBR010362

PATIENT
  Age: 76 Year
  Sex: Female
  Weight: 82 kg

DRUGS (5)
  1. ACETAMINOPHEN AND CODEINE [Concomitant]
     Active Substance: ACETAMINOPHEN\CODEINE PHOSPHATE
     Dosage: 1 TO 2 EVERY 4 TO 6 HOURS, MAXIMUM 8 IN A DAY. 8MG/500MG.
     Dates: start: 20190416
  2. CASSIA [Concomitant]
     Dosage: 15 MG, ONCE DAILY (AT NIGHT)
     Dates: start: 20190416
  3. HYLO FORTE [Concomitant]
     Dosage: 4 DRP (DROP (1/12 MILLILITRE))
     Dates: start: 20190315
  4. CIPROFLOXACIN. [Concomitant]
     Active Substance: CIPROFLOXACIN
     Dosage: 1000 MG, QD
     Dates: start: 20190408
  5. LISINOPRIL. [Suspect]
     Active Substance: LISINOPRIL
     Dosage: 10 MG, QD
     Dates: start: 20190418, end: 20190419

REACTIONS (2)
  - Dysphagia [Recovering/Resolving]
  - Swollen tongue [Recovering/Resolving]

NARRATIVE: CASE EVENT DATE: 20190418
